FAERS Safety Report 17674564 (Version 3)
Quarter: 2021Q1

REPORT INFORMATION
  Report Type: Other
  Country: DE (occurrence: DE)
  Receive Date: 20200416
  Receipt Date: 20210311
  Transmission Date: 20210419
  Serious: Yes (Hospitalization, Other)
  Sender: FDA-Public Use
  Company Number: DE-ROCHE-2069709

PATIENT
  Age: 64 Year
  Sex: Female

DRUGS (11)
  1. METOPROLOL. [Concomitant]
     Active Substance: METOPROLOL
  2. VALSARTAN. [Concomitant]
     Active Substance: VALSARTAN
  3. ROACTEMRA [Suspect]
     Active Substance: TOCILIZUMAB
     Indication: GIANT CELL ARTERITIS
     Route: 042
     Dates: start: 20170315, end: 20180711
  4. ROACTEMRA [Suspect]
     Active Substance: TOCILIZUMAB
     Indication: RHEUMATOID ARTHRITIS
     Dosage: ACCORDING TO BODY WEIGHT
     Route: 042
     Dates: start: 20181128
  5. ROACTEMRA [Suspect]
     Active Substance: TOCILIZUMAB
     Indication: GIANT CELL ARTERITIS
     Route: 058
     Dates: start: 202003, end: 20210106
  6. L?THYROXIN [Concomitant]
     Active Substance: LEVOTHYROXINE SODIUM
  7. PREDNISOLON [Concomitant]
     Active Substance: PREDNISOLONE
  8. ROACTEMRA [Suspect]
     Active Substance: TOCILIZUMAB
     Indication: RHEUMATOID ARTHRITIS
  9. PREDNISOLON [Concomitant]
     Active Substance: PREDNISOLONE
  10. ROACTEMRA [Suspect]
     Active Substance: TOCILIZUMAB
     Route: 042
     Dates: start: 20210118
  11. TEMGESIC [Concomitant]
     Active Substance: BUPRENORPHINE HYDROCHLORIDE

REACTIONS (16)
  - Cystitis [Recovered/Resolved]
  - Vomiting [Recovered/Resolved]
  - Lipase increased [Recovered/Resolved]
  - Herpes zoster [Recovered/Resolved]
  - Pain in jaw [Not Recovered/Not Resolved]
  - Hypersensitivity [Recovered/Resolved]
  - Bone contusion [Recovered/Resolved]
  - Giant cell arteritis [Not Recovered/Not Resolved]
  - Ear pain [Recovered/Resolved]
  - Headache [Recovered/Resolved]
  - Drug ineffective [Unknown]
  - Sialoadenitis [Unknown]
  - Gamma-glutamyltransferase increased [Recovered/Resolved]
  - Blood creatine phosphokinase increased [Recovered/Resolved]
  - Fall [Unknown]
  - Nausea [Recovered/Resolved]

NARRATIVE: CASE EVENT DATE: 201801
